FAERS Safety Report 7607951-5 (Version None)
Quarter: 2011Q3

REPORT INFORMATION
  Report Type: 
  Country: None (occurrence: None)
  Receive Date: 20110712
  Receipt Date: 20110712
  Transmission Date: 20111222
  Serious: No
  Sender: FDA-Public Use
  Company Number: None

PATIENT
  Age: 56 Year
  Sex: Male
  Weight: 104.6 kg

DRUGS (2)
  1. MELOXICAM [Suspect]
     Indication: PAIN
     Dosage: 7.5 MAG BID PO
     Route: 048
     Dates: start: 20100803, end: 20110208
  2. ENALAPRIL MALEATE [Suspect]
     Indication: HYPERTENSION
     Dosage: 10 MG EVERY DAY PO
     Route: 048
     Dates: start: 20100803, end: 20110208

REACTIONS (3)
  - PHARYNGEAL OEDEMA [None]
  - ANGIOEDEMA [None]
  - SWOLLEN TONGUE [None]
